FAERS Safety Report 7733152-6 (Version None)
Quarter: 2011Q3

REPORT INFORMATION
  Report Type: 
  Country: None (occurrence: None)
  Receive Date: 20110907
  Receipt Date: 20110901
  Transmission Date: 20111222
  Serious: No
  Sender: FDA-Public Use
  Company Number: US-PFIZER INC-2011205410

PATIENT
  Sex: Female
  Weight: 90.703 kg

DRUGS (4)
  1. IBUPROFEN [Suspect]
     Indication: BACK PAIN
     Dosage: UNK
  2. CORTISONE ACETATE [Suspect]
     Indication: BACK PAIN
     Dosage: UNK
  3. VOLTAREN [Suspect]
     Indication: BACK PAIN
     Dosage: UNK
     Route: 061
  4. FLECTOR [Suspect]
     Indication: BACK PAIN
     Dosage: UNK
     Dates: start: 20110830

REACTIONS (1)
  - DRUG INEFFECTIVE [None]
